FAERS Safety Report 23910636 (Version 1)
Quarter: 2024Q2

REPORT INFORMATION
  Report Type: Spontaneous
  Country: US (occurrence: US)
  Receive Date: 20240528
  Receipt Date: 20240528
  Transmission Date: 20240715
  Serious: No
  Sender: FDA-Public Use
  Company Number: US-AVADEL CNS PHARMACEUTICALS, LLC-2024AVA00212

PATIENT
  Age: 31 Year
  Sex: Female

DRUGS (3)
  1. LUMRYZ [Suspect]
     Active Substance: SODIUM OXYBATE
     Indication: Narcolepsy
     Dosage: 4.5 G
     Dates: start: 202402, end: 202402
  2. LUMRYZ [Suspect]
     Active Substance: SODIUM OXYBATE
     Indication: Narcolepsy
     Dosage: 7.5 G
     Dates: start: 202402, end: 202402
  3. SUNOSI [Concomitant]
     Active Substance: SOLRIAMFETOL
     Dosage: UNK

REACTIONS (12)
  - Initial insomnia [Unknown]
  - Diplopia [Unknown]
  - Hypoaesthesia [Unknown]
  - Malaise [Unknown]
  - Crying [Unknown]
  - Gait disturbance [Unknown]
  - Balance disorder [Unknown]
  - Dysstasia [Unknown]
  - Paraesthesia [Unknown]
  - Depression [Unknown]
  - Nocturia [Unknown]
  - Nausea [Unknown]

NARRATIVE: CASE EVENT DATE: 20240201
